FAERS Safety Report 4464744-8 (Version None)
Quarter: 2004Q4

REPORT INFORMATION
  Report Type: 
  Country: None (occurrence: None)
  Receive Date: 20041004
  Receipt Date: 20040712
  Transmission Date: 20050328
  Serious: No
  Sender: FDA-Public Use
  Company Number: 377644

PATIENT
  Age: 46 Year
  Sex: Male
  Weight: 106.8 kg

DRUGS (2)
  1. COREG [Suspect]
     Indication: HYPERTENSION
     Dosage: 6.25MG TWICE PER DAY
     Route: 048
     Dates: start: 20020801, end: 20040709
  2. NO CONCURRENT MEDICATION [Concomitant]

REACTIONS (3)
  - ASTHENIA [None]
  - HEART RATE INCREASED [None]
  - PHARMACEUTICAL PRODUCT COMPLAINT [None]
